FAERS Safety Report 13496759 (Version 1)
Quarter: 2017Q2

REPORT INFORMATION
  Report Type: Spontaneous
  Country: US (occurrence: US)
  Receive Date: 20170428
  Receipt Date: 20170428
  Transmission Date: 20170830
  Serious: Yes (Death, Hospitalization, Congenital Anomaly, Other)
  Sender: FDA-Public Use
  Company Number: US-PFIZER INC-0002791401PHAMED

PATIENT
  Sex: Male
  Weight: 3.2 kg

DRUGS (4)
  1. MINOXIDIL. [Suspect]
     Active Substance: MINOXIDIL
     Indication: HYPERTENSION
     Dosage: 10 MG, 1X/DAY
     Route: 064
  2. FUROSEMIDE. [Concomitant]
     Active Substance: FUROSEMIDE
     Dosage: UNK
     Route: 064
  3. INDERAL [Interacting]
     Active Substance: PROPRANOLOL HYDROCHLORIDE
     Indication: HYPERTENSION
     Dosage: 160 MG, DAILY
     Route: 064
  4. CAPTOPRIL. [Interacting]
     Active Substance: CAPTOPRIL
     Indication: HYPERTENSION
     Dosage: 50 MG, 1X/DAY
     Route: 064

REACTIONS (15)
  - Cardiac failure congestive [Unknown]
  - Hypotension [Recovered/Resolved]
  - Jaundice neonatal [Unknown]
  - Maternal exposure during pregnancy [Fatal]
  - Atrophy [Unknown]
  - Fat tissue increased [Unknown]
  - Congenital hypertrichosis [Recovering/Resolving]
  - Body temperature increased [Unknown]
  - Drug interaction [Unknown]
  - Ventricular septal defect [Fatal]
  - Exomphalos [Recovered/Resolved]
  - Clinodactyly [Unknown]
  - Cryptorchism [Unknown]
  - Dysmorphism [Unknown]
  - Premature baby [Unknown]

NARRATIVE: CASE EVENT DATE: 19860312
